FAERS Safety Report 5071512-5 (Version None)
Quarter: 2006Q3

REPORT INFORMATION
  Report Type: 
  Country: None (occurrence: None)
  Receive Date: 20060803
  Receipt Date: 20060803
  Transmission Date: 20061208
  Serious: Yes (Hospitalization)
  Sender: FDA-Public Use
  Company Number: None

PATIENT
  Age: 12 Year
  Sex: Female
  Weight: 63 kg

DRUGS (1)
  1. PEGASPARGASE -ONCASPAR-  750 UNITS/ML  ENZON [Suspect]
     Indication: ACUTE LYMPHOCYTIC LEUKAEMIA
     Dosage: 2500 UNITS/M2  ONCE IM
     Route: 030
     Dates: start: 20060719, end: 20060719

REACTIONS (8)
  - ADVERSE DRUG REACTION [None]
  - DYSPNOEA [None]
  - LYMPHOCYTE STIMULATION TEST POSITIVE [None]
  - NAUSEA [None]
  - RASH [None]
  - SWELLING [None]
  - URTICARIA [None]
  - WHEEZING [None]
